FAERS Safety Report 24327570 (Version 1)
Quarter: 2024Q3

REPORT INFORMATION
  Report Type: Spontaneous
  Country: US (occurrence: US)
  Receive Date: 20240917
  Receipt Date: 20240917
  Transmission Date: 20241016
  Serious: Yes (Other)
  Sender: EPIC PHARM
  Company Number: US-EPICPHARMA-US-2024EPCSPO01125

PATIENT

DRUGS (1)
  1. DEXTROAMPHET SACCHARAT, AMPHET ASPARTATE, DEXTROAMPHET SULFATE AND AMP [Suspect]
     Active Substance: AMPHETAMINE ASPARTATE\AMPHETAMINE SULFATE\DEXTROAMPHETAMINE SACCHARATE\DEXTROAMPHETAMINE SULFATE
     Indication: Product used for unknown indication
     Route: 065
     Dates: start: 202407

REACTIONS (15)
  - Mental impairment [Unknown]
  - Headache [Unknown]
  - Brain fog [Unknown]
  - Fatigue [Unknown]
  - Pain in jaw [Unknown]
  - Cold sweat [Unknown]
  - Pain [Unknown]
  - Disturbance in attention [Unknown]
  - Apathy [Unknown]
  - Abnormal dreams [Unknown]
  - Therapeutic response changed [Unknown]
  - Manufacturing materials issue [Unknown]
  - Product substitution issue [Unknown]
  - Drug ineffective [Unknown]
  - Manufacturing materials issue [Unknown]

NARRATIVE: CASE EVENT DATE: 20240101
